FAERS Safety Report 5141047-X (Version None)
Quarter: 2006Q4

REPORT INFORMATION
  Report Type: 
  Country: None (occurrence: None)
  Receive Date: 20061026
  Receipt Date: 20060814
  Transmission Date: 20070319
  Serious: Yes (Other)
  Sender: FDA-Public Use
  Company Number: CHNY2006NZ01167

PATIENT
  Age: 50 Year
  Sex: Female

DRUGS (3)
  1. NICOTINE [Suspect]
     Indication: SMOKING CESSATION THERAPY
     Dosage: ABOUT 12X4MG GUMS PER DAY, CHEWED
     Dates: start: 20060313
  2. ESTROFEM (ESTRADIOL, ESTRIOL) [Concomitant]
  3. BENDROFLUAZIDE (BENDROFLUMETHIAZIDE) [Concomitant]

REACTIONS (5)
  - ERYTHEMA [None]
  - EYELID OEDEMA [None]
  - OEDEMA PERIPHERAL [None]
  - SKIN EXFOLIATION [None]
  - SWELLING FACE [None]
